FAERS Safety Report 4655867-9 (Version None)
Quarter: 2005Q2

REPORT INFORMATION
  Report Type: 
  Country: None (occurrence: None)
  Receive Date: 20050505
  Receipt Date: 20050422
  Transmission Date: 20051028
  Serious: Yes (Other)
  Sender: FDA-Public Use
  Company Number: 2005060814

PATIENT
  Age: 49 Year
  Sex: Female

DRUGS (4)
  1. BEXTRA [Suspect]
     Indication: MUSCLE SPASMS
     Dosage: 40 MG (40 MG, 1 IN 1 D), ORAL
     Route: 048
     Dates: start: 20050317, end: 20050322
  2. FLUPIRTINE MALEATE (FLUPIRTINE MALEATE) [Concomitant]
  3. PHENOBARBITAL TAB [Concomitant]
  4. CLONAZEPAM [Concomitant]

REACTIONS (4)
  - DRY SKIN [None]
  - FURUNCLE [None]
  - POLLAKIURIA [None]
  - SOMNOLENCE [None]
